FAERS Safety Report 8061152-8 (Version None)
Quarter: 2012Q1

REPORT INFORMATION
  Report Type: 
  Country: None (occurrence: None)
  Receive Date: 20120120
  Receipt Date: 20110620
  Transmission Date: 20120608
  Serious: No
  Sender: FDA-Public Use
  Company Number: US-ALLERGAN-1108070US

PATIENT
  Age: 74 Year
  Sex: Female

DRUGS (3)
  1. RESTASIS [Suspect]
     Indication: DRY EYE
     Dosage: 1 GTT, BID
     Dates: start: 20110607
  2. BLINK                              /00582501/ [Concomitant]
     Dosage: UNK
     Route: 047
  3. RESTASIS [Suspect]
     Indication: ULCERATIVE KERATITIS

REACTIONS (3)
  - EYE PAIN [None]
  - ASTHENOPIA [None]
  - FOREIGN BODY SENSATION IN EYES [None]
